FAERS Safety Report 25460323 (Version 1)
Quarter: 2025Q2

REPORT INFORMATION
  Report Type: Spontaneous
  Country: JP (occurrence: JP)
  Receive Date: 20250620
  Receipt Date: 20250620
  Transmission Date: 20250717
  Serious: Yes (Hospitalization)
  Sender: BOEHRINGER INGELHEIM
  Company Number: JP-NBI-2025-BI-078130

PATIENT
  Age: 4 Decade
  Sex: Male
  Weight: 82.3 kg

DRUGS (5)
  1. JARDIANCE [Suspect]
     Active Substance: EMPAGLIFLOZIN
     Indication: Heart failure with reduced ejection fraction
  2. SPIRONOLACTONE [Concomitant]
     Active Substance: SPIRONOLACTONE
     Indication: Product used for unknown indication
  3. BISOPROLOL FUMARATE [Concomitant]
     Active Substance: BISOPROLOL FUMARATE
     Indication: Product used for unknown indication
  4. SACUBITRIL VALSARTAN SODIUM HYDRATE [Concomitant]
     Indication: Product used for unknown indication
  5. TORSEMIDE [Concomitant]
     Active Substance: TORSEMIDE
     Indication: Polyuria

REACTIONS (2)
  - Cardiac failure [Unknown]
  - Weight increased [Unknown]
